FAERS Safety Report 8834501 (Version 2)
Quarter: 2012Q4

REPORT INFORMATION
  Report Type: 
  Country: US (occurrence: US)
  Receive Date: 20121010
  Receipt Date: 20121020
  Transmission Date: 20130627
  Serious: Yes (Hospitalization)
  Sender: FDA-Public Use
  Company Number: US-ABBOTT-12P-163-0991626-00

PATIENT
  Age: 21 Year
  Sex: Female
  Weight: 51.76 kg

DRUGS (6)
  1. HUMIRA [Suspect]
     Dates: start: 20120907, end: 20120907
  2. HUMIRA [Suspect]
  3. ENTOCORT [Concomitant]
     Indication: CROHN^S DISEASE
  4. ZOFRAN [Concomitant]
     Indication: NAUSEA
  5. TRAMADOL [Concomitant]
     Indication: PAIN
  6. NUVA RING [Concomitant]
     Indication: CONTRACEPTION

REACTIONS (26)
  - Bradyphrenia [Not Recovered/Not Resolved]
  - Speech disorder [Recovered/Resolved]
  - Feeling drunk [Unknown]
  - Fatigue [Not Recovered/Not Resolved]
  - Chest discomfort [Recovered/Resolved]
  - Syncope [Recovered/Resolved]
  - Headache [Recovered/Resolved]
  - Nausea [Recovered/Resolved]
  - Confusional state [Recovered/Resolved]
  - Dysarthria [Recovered/Resolved]
  - Gait disturbance [Recovered/Resolved]
  - Hypokalaemia [Recovered/Resolved]
  - Adverse drug reaction [Unknown]
  - Drug specific antibody present [Unknown]
  - Incorrect dose administered [Unknown]
  - Injection site extravasation [Unknown]
  - Psoriasis [Unknown]
  - Injection site pain [Unknown]
  - Incorrect dose administered [Unknown]
  - Injection site haemorrhage [Unknown]
  - Injection site swelling [Unknown]
  - Injection site erythema [Unknown]
  - Injection site bruising [Unknown]
  - Injection site warmth [Unknown]
  - Injection site pain [Unknown]
  - Injection site extravasation [Unknown]
